FAERS Safety Report 4406451-3 (Version None)
Quarter: 2004Q3

REPORT INFORMATION
  Report Type: 
  Country: None (occurrence: None)
  Receive Date: 20040723
  Receipt Date: 20040714
  Transmission Date: 20050211
  Serious: Yes (Hospitalization)
  Sender: FDA-Public Use
  Company Number: JP-MERCK-0407USA01576

PATIENT
  Sex: Male

DRUGS (3)
  1. STRONGER NEO-MINOPHAGEN C [Concomitant]
     Route: 042
  2. INDOCIN [Suspect]
     Route: 054
  3. MINOMYCIN [Concomitant]
     Route: 065

REACTIONS (2)
  - INTERSTITIAL LUNG DISEASE [None]
  - RASH [None]
